FAERS Safety Report 18155823 (Version 1)
Quarter: 2020Q3

REPORT INFORMATION
  Report Type: Spontaneous
  Country: US (occurrence: US)
  Receive Date: 20200814
  Receipt Date: 20200814
  Transmission Date: 20201103
  Serious: Yes (Disabling)
  Sender: FDA-Public Use
  Company Number: None

PATIENT
  Age: 41 Year
  Sex: Male
  Weight: 130.5 kg

DRUGS (4)
  1. HYDROXAZINE [Concomitant]
  2. TRILEPTAL [Suspect]
     Active Substance: OXCARBAZEPINE
     Indication: BIPOLAR DISORDER
     Dosage: ?          QUANTITY:1 TABLET(S);?
     Route: 048
     Dates: start: 20200224, end: 20200505
  3. VITAMIN D [Concomitant]
     Active Substance: VITAMIN D NOS
  4. PROZAC [Concomitant]
     Active Substance: FLUOXETINE HYDROCHLORIDE

REACTIONS (6)
  - Anorectal discomfort [None]
  - Haematochezia [None]
  - Anal injury [None]
  - Pain [None]
  - Mucosal dryness [None]
  - Dry mouth [None]

NARRATIVE: CASE EVENT DATE: 20200224
